FAERS Safety Report 8849638 (Version 1)
Quarter: 2012Q4

REPORT INFORMATION
  Report Type: Spontaneous
  Country: US (occurrence: None)
  Receive Date: 20121018
  Receipt Date: 20121018
  Transmission Date: 20130627
  Serious: Yes (Other)
  Sender: FDA-Public Use
  Company Number: None

PATIENT
  Age: 64 Year
  Sex: Female
  Weight: 117.94 kg

DRUGS (1)
  1. AZELASTINE [Suspect]
     Indication: MULTIPLE ALLERGIES
     Dosage: 2 sprays bid Nasal
     Dates: start: 20120920, end: 20121007

REACTIONS (8)
  - Product taste abnormal [None]
  - Cough [None]
  - Lacrimation increased [None]
  - Upper-airway cough syndrome [None]
  - Insomnia [None]
  - Burning sensation [None]
  - Product substitution issue [None]
  - Product quality issue [None]
